FAERS Safety Report 4450875-5 (Version None)
Quarter: 2004Q3

REPORT INFORMATION
  Report Type: 
  Country: None (occurrence: None)
  Receive Date: 20040916
  Receipt Date: 20011016
  Transmission Date: 20050211
  Serious: Yes (Other)
  Sender: FDA-Public Use
  Company Number: US-BRISTOL-MYERS SQUIBB COMPANY-11534591

PATIENT
  Age: 38 Year
  Sex: Female

DRUGS (7)
  1. STADOL [Suspect]
     Route: 045
     Dates: start: 19931201
  2. STADOL [Suspect]
     Dosage: ROUTE: IM + IV
  3. LORTAB [Concomitant]
  4. PROPRANOLOL [Concomitant]
  5. PROMETHAZINE [Concomitant]
  6. PROPOXYPHENE [Concomitant]
  7. AMITRIPTYLINE HCL [Concomitant]

REACTIONS (2)
  - DEPENDENCE [None]
  - DRUG WITHDRAWAL SYNDROME [None]
